FAERS Safety Report 20557119 (Version 2)
Quarter: 2024Q2

REPORT INFORMATION
  Report Type: Spontaneous
  Country: CA (occurrence: CA)
  Receive Date: 20220307
  Receipt Date: 20240418
  Transmission Date: 20240716
  Serious: Yes (Other)
  Sender: FDA-Public Use
  Company Number: CA-LEADINGPHARMA-CA-2022LEALIT00033

PATIENT
  Age: 26 Year
  Sex: Female
  Weight: 58 kg

DRUGS (4)
  1. LIDOCAINE [Suspect]
     Active Substance: LIDOCAINE
     Indication: Local anaesthesia
     Dosage: 10ML OF 2% LIDOCAINE
     Route: 065
  2. LIDOCAINE [Suspect]
     Active Substance: LIDOCAINE
     Dosage: 2% 4ML BOLUS
     Route: 008
  3. LIDOCAINE [Suspect]
     Active Substance: LIDOCAINE
     Dosage: 400MG (20ML OF 2%)
     Route: 065
  4. EPINEPHRINE [Concomitant]
     Active Substance: EPINEPHRINE
     Indication: Product used for unknown indication
     Dosage: 1:200000 VIA THE EPIDURAL CATHETER
     Route: 008

REACTIONS (5)
  - Local anaesthetic systemic toxicity [Recovered/Resolved]
  - Altered state of consciousness [Recovered/Resolved]
  - Hypoaesthesia oral [Recovered/Resolved]
  - Tinnitus [Recovered/Resolved]
  - Maternal exposure during delivery [Unknown]
